FAERS Safety Report 25165237 (Version 1)
Quarter: 2025Q2

REPORT INFORMATION
  Report Type: Spontaneous
  Country: DE (occurrence: DE)
  Receive Date: 20250407
  Receipt Date: 20250407
  Transmission Date: 20250717
  Serious: Yes (Other)
  Sender: CHEPLAPHARM
  Company Number: DE-EMB-M202305541-1

PATIENT
  Sex: Male
  Weight: 2.5299 kg

DRUGS (15)
  1. QUETIAPINE [Suspect]
     Active Substance: QUETIAPINE
     Dosage: DAILY DOSE: 50 MILLIGRAM
     Route: 064
     Dates: start: 202307, end: 202307
  2. QUETIAPINE [Suspect]
     Active Substance: QUETIAPINE
     Dosage: DAILY DOSE: 100 MILLIGRAM
     Route: 064
     Dates: start: 202307, end: 202307
  3. QUETIAPINE [Suspect]
     Active Substance: QUETIAPINE
     Dosage: DAILY DOSE: 150 MILLIGRAM
     Route: 064
     Dates: start: 202307, end: 202307
  4. QUETIAPINE [Suspect]
     Active Substance: QUETIAPINE
     Dosage: DAILY DOSE: 200 MILLIGRAM
     Route: 064
     Dates: start: 202307, end: 202307
  5. QUETIAPINE [Suspect]
     Active Substance: QUETIAPINE
     Dosage: DAILY DOSE: 250 MILLIGRAM
     Route: 064
     Dates: start: 202307, end: 202307
  6. QUETIAPINE [Suspect]
     Active Substance: QUETIAPINE
     Dosage: FROM GW 12 ?RETARD TABLETS?DAILY DOSE: 300 MILLIGRAM
     Route: 064
     Dates: start: 202307, end: 202308
  7. QUETIAPINE [Suspect]
     Active Substance: QUETIAPINE
     Dosage: FROM GW 12 ?RETARD TABLETS?DAILY DOSE: 400 MILLIGRAM
     Route: 064
     Dates: start: 202308, end: 202308
  8. QUETIAPINE [Suspect]
     Active Substance: QUETIAPINE
     Dosage: RETARD TABLETS?DAILY DOSE: 450 MILLIGRAM
     Route: 064
     Dates: start: 202308, end: 202312
  9. QUETIAPINE [Suspect]
     Active Substance: QUETIAPINE
     Dosage: RETARD TABLETS?DAILY DOSE: 400 MILLIGRAM
     Route: 064
     Dates: start: 202312, end: 202402
  10. INSULIN NOS [Concomitant]
     Active Substance: INSULIN NOS
     Dosage: ELEVATED FASTING VALUES?DAILY DOSE: 10 IU (INTERNATIONAL UNIT)
     Route: 064
  11. PERTUSSIS VACCINE [Concomitant]
     Active Substance: PERTUSSIS VACCINE
     Route: 064
  12. FOLIC ACID [Concomitant]
     Active Substance: FOLIC ACID
     Route: 064
  13. SERTRALINE [Concomitant]
     Active Substance: SERTRALINE HYDROCHLORIDE
     Dosage: DAILY DOSE: 50 MILLIGRAM
     Route: 064
     Dates: start: 202305, end: 202307
  14. SERTRALINE [Concomitant]
     Active Substance: SERTRALINE HYDROCHLORIDE
     Dosage: DAILY DOSE: 25 MILLIGRAM
     Route: 064
     Dates: start: 202307, end: 202307
  15. CARIPRAZINE [Concomitant]
     Active Substance: CARIPRAZINE
     Dosage: STOPPED AFTER COUNSELING, INSTEAD STARTET WITH QUETIAPINE?DAILY DOSE: 4.5 MILLIGRAM
     Route: 064
     Dates: start: 202305, end: 20230703

REACTIONS (2)
  - Small for dates baby [Recovering/Resolving]
  - Foetal exposure during pregnancy [Unknown]
